FAERS Safety Report 18939726 (Version 3)
Quarter: 2021Q1

REPORT INFORMATION
  Report Type: Report from Study
  Country: GT (occurrence: GT)
  Receive Date: 20210225
  Receipt Date: 20210331
  Transmission Date: 20210420
  Serious: Yes (Hospitalization)
  Sender: FDA-Public Use
  Company Number: NVSC2021GT040665

PATIENT
  Sex: Female

DRUGS (2)
  1. FINGOLIMOD. [Suspect]
     Active Substance: FINGOLIMOD
     Indication: MULTIPLE SCLEROSIS
     Dosage: 0.5 MG, QD
     Route: 048
     Dates: start: 20190128, end: 20210215
  2. FINGOLIMOD. [Suspect]
     Active Substance: FINGOLIMOD
     Dosage: 0.5 MG, QD
     Route: 048
     Dates: start: 20210312

REACTIONS (5)
  - Seizure [Unknown]
  - Pain in extremity [Unknown]
  - Illness [Unknown]
  - Inflammation [Unknown]
  - Gait inability [Unknown]
